FAERS Safety Report 26022482 (Version 1)
Quarter: 2025Q4

REPORT INFORMATION
  Report Type: Spontaneous
  Country: US (occurrence: US)
  Receive Date: 20251110
  Receipt Date: 20251110
  Transmission Date: 20260117
  Serious: Yes (Hospitalization, Other)
  Sender: GLAXOSMITHKLINE
  Company Number: US-GSK-US2025140880

PATIENT
  Sex: Male

DRUGS (1)
  1. BREO ELLIPTA [Suspect]
     Active Substance: FLUTICASONE FUROATE\VILANTEROL TRIFENATATE
     Indication: Chronic obstructive pulmonary disease
     Dosage: 1 PUFFS, QD, 100/25MCG BY MOUTH DAILY

REACTIONS (4)
  - Pneumonia [Unknown]
  - Oxygen saturation decreased [Unknown]
  - Urinary tract infection [Unknown]
  - Product dose omission issue [Unknown]
